FAERS Safety Report 19025113 (Version 1)
Quarter: 2021Q1

REPORT INFORMATION
  Report Type: Spontaneous
  Country: US (occurrence: US)
  Receive Date: 20210317
  Receipt Date: 20210317
  Transmission Date: 20210420
  Serious: No
  Sender: FDA-Public Use
  Company Number: None

PATIENT
  Age: 32 Year
  Sex: Male
  Weight: 92.25 kg

DRUGS (2)
  1. PAROXETINE HCL CONTROLLED?RELEASE TABLETS 25 MG [Suspect]
     Active Substance: PAROXETINE HYDROCHLORIDE
     Indication: ANXIETY
     Route: 048
     Dates: start: 20210301, end: 20210317
  2. PAROXETINE HCL CONTROLLED?RELEASE TABLETS 25 MG [Suspect]
     Active Substance: PAROXETINE HYDROCHLORIDE
     Indication: DEPRESSION
     Route: 048
     Dates: start: 20210301, end: 20210317

REACTIONS (2)
  - Product quality issue [None]
  - Withdrawal syndrome [None]

NARRATIVE: CASE EVENT DATE: 20210301
